FAERS Safety Report 11406106 (Version 1)
Quarter: 2015Q3

REPORT INFORMATION
  Report Type: Spontaneous
  Country: IT (occurrence: IT)
  Receive Date: 20150821
  Receipt Date: 20150821
  Transmission Date: 20151125
  Serious: Yes (Hospitalization)
  Sender: FDA-Public Use
  Company Number: IT-ASTRAZENECA-2015SE78793

PATIENT
  Age: 30392 Day
  Sex: Male

DRUGS (4)
  1. LEVOTHYROXINE. [Concomitant]
     Active Substance: LEVOTHYROXINE
     Indication: HYPOTHYROIDISM
     Route: 048
  2. CARDIOASPIRIN [Suspect]
     Active Substance: ASPIRIN
     Indication: PLATELET AGGREGATION INHIBITION
     Route: 048
  3. RAMIPRIL. [Concomitant]
     Active Substance: RAMIPRIL
     Indication: HYPERTENSION
     Dosage: 5 MG
     Route: 048
  4. BRILIQUE [Suspect]
     Active Substance: TICAGRELOR
     Indication: PLATELET AGGREGATION INHIBITION
     Dosage: 90 MG FILM COATED TABLET
     Route: 048
     Dates: end: 20130509

REACTIONS (2)
  - Intestinal haemorrhage [Unknown]
  - Anaemia [Unknown]

NARRATIVE: CASE EVENT DATE: 20130427
